FAERS Safety Report 10969112 (Version 1)
Quarter: 2015Q1

REPORT INFORMATION
  Report Type: Report from Study
  Country: DE (occurrence: DE)
  Receive Date: 20150331
  Receipt Date: 20150331
  Transmission Date: 20150721
  Serious: Yes (Hospitalization)
  Sender: FDA-Public Use
  Company Number: DE-ROCHE-1548536

PATIENT
  Age: 58 Year
  Sex: Male

DRUGS (18)
  1. RIVAROXABAN [Concomitant]
     Active Substance: RIVAROXABAN
  2. LUMIGAN [Concomitant]
     Active Substance: BIMATOPROST
     Route: 065
     Dates: start: 20080106
  3. VIGANTOLETTEN [Concomitant]
     Active Substance: CHOLECALCIFEROL
  4. SPIRIVA [Concomitant]
     Active Substance: TIOTROPIUM BROMIDE MONOHYDRATE
  5. BUDECORT [Concomitant]
     Active Substance: BUDESONIDE
     Route: 065
     Dates: start: 20140401
  6. NASONEX [Concomitant]
     Active Substance: MOMETASONE FUROATE
     Route: 065
     Dates: start: 20050904
  7. MONTELUKAST SODIUM. [Concomitant]
     Active Substance: MONTELUKAST SODIUM
     Route: 065
     Dates: start: 20140401
  8. BRETARIS GENUAIR [Concomitant]
     Route: 065
     Dates: start: 20140407
  9. AVALOX [Concomitant]
     Active Substance: MOXIFLOXACIN HYDROCHLORIDE
     Route: 065
     Dates: start: 20140108, end: 20140113
  10. OMALIZUMAB [Suspect]
     Active Substance: OMALIZUMAB
     Indication: ASTHMA
     Route: 058
     Dates: start: 201207
  11. METHYLPREDNISOLONE. [Concomitant]
     Active Substance: METHYLPREDNISOLONE
     Route: 065
     Dates: start: 20000910
  12. FORMOTEROL [Concomitant]
     Active Substance: FORMOTEROL
     Route: 065
     Dates: start: 20140401
  13. BERODUAL [Concomitant]
     Active Substance: FENOTEROL HYDROBROMIDE\IPRATROPIUM BROMIDE
     Route: 065
     Dates: start: 20000910
  14. MULTAQ [Concomitant]
     Active Substance: DRONEDARONE
  15. DRONEDARONE [Concomitant]
     Active Substance: DRONEDARONE
  16. THEOPHYLLINE [Concomitant]
     Active Substance: THEOPHYLLINE ANHYDROUS
     Route: 065
     Dates: start: 20000910
  17. XARELTO [Concomitant]
     Active Substance: RIVAROXABAN
  18. TOREM [Concomitant]
     Active Substance: TORSEMIDE

REACTIONS (8)
  - Bundle branch block right [Unknown]
  - Haemophilus infection [Unknown]
  - Hypertension [Unknown]
  - Emphysema [Unknown]
  - Bacterial disease carrier [Unknown]
  - Pleural effusion [Unknown]
  - Asthma [Recovering/Resolving]
  - Rib fracture [Unknown]

NARRATIVE: CASE EVENT DATE: 201303
